FAERS Safety Report 4376197-9 (Version None)
Quarter: 2004Q2

REPORT INFORMATION
  Report Type: 
  Country: None (occurrence: None)
  Receive Date: 20040610
  Receipt Date: 20040610
  Transmission Date: 20050107
  Serious: No
  Sender: FDA-Public Use
  Company Number: None

PATIENT
  Sex: Female

DRUGS (2)
  1. NABUMETONE [Suspect]
     Indication: ARTHRALGIA
     Dosage: 750 MG PO BID
     Route: 048
     Dates: start: 20040301, end: 20040501
  2. NABUMETONE [Suspect]
     Indication: BACK PAIN
     Dosage: 750 MG PO BID
     Route: 048
     Dates: start: 20040301, end: 20040501

REACTIONS (2)
  - DRUG INEFFECTIVE [None]
  - PHARMACEUTICAL PRODUCT COMPLAINT [None]
